FAERS Safety Report 7266907-5 (Version None)
Quarter: 2011Q1

REPORT INFORMATION
  Report Type: 
  Country: None (occurrence: None)
  Receive Date: 20110201
  Receipt Date: 20110125
  Transmission Date: 20110831
  Serious: Yes (Death)
  Sender: FDA-Public Use
  Company Number: US-ELI_LILLY_AND_COMPANY-US201101006519

PATIENT
  Age: 48 Year
  Sex: Male

DRUGS (3)
  1. ZYPREXA [Suspect]
     Indication: MAJOR DEPRESSION
     Dosage: UNK, UNK
     Dates: start: 20101201
  2. ALCOHOL [Concomitant]
  3. CELEXA [Concomitant]
     Indication: MAJOR DEPRESSION

REACTIONS (2)
  - COMPLETED SUICIDE [None]
  - OFF LABEL USE [None]
